FAERS Safety Report 6189004-9 (Version None)
Quarter: 2009Q2

REPORT INFORMATION
  Report Type: 
  Country: None (occurrence: None)
  Receive Date: 20090512
  Receipt Date: 20090512
  Transmission Date: 20091009
  Serious: No
  Sender: FDA-Public Use
  Company Number: None

PATIENT
  Age: 34 Year
  Sex: Male
  Weight: 99.8 kg

DRUGS (1)
  1. OPTIRAY 350 [Suspect]
     Dosage: 100CC X 1 IV
     Route: 042
     Dates: start: 20090413

REACTIONS (2)
  - THROAT IRRITATION [None]
  - URTICARIA [None]
